FAERS Safety Report 15960569 (Version 1)
Quarter: 2019Q1

REPORT INFORMATION
  Report Type: Spontaneous
  Country: SE (occurrence: SE)
  Receive Date: 20190214
  Receipt Date: 20190214
  Transmission Date: 20190417
  Serious: Yes (Other)
  Sender: FDA-Public Use
  Company Number: SE-TEVA-2019-SE-1009818

PATIENT
  Age: 80 Year
  Sex: Male

DRUGS (9)
  1. FINASTERID [Concomitant]
     Active Substance: FINASTERIDE
  2. METFORMIN [Concomitant]
     Active Substance: METFORMIN HYDROCHLORIDE
  3. ALFUZOSIN [Concomitant]
     Active Substance: ALFUZOSIN
  4. IMOVANE [Concomitant]
     Active Substance: ZOPICLONE
  5. ENALAPRIL [Concomitant]
     Active Substance: ENALAPRIL
  6. NORSPAN [Concomitant]
     Active Substance: BUPRENORPHINE
  7. AMLODIPINE [Suspect]
     Active Substance: AMLODIPINE BESYLATE
     Indication: HYPERTENSION
     Route: 048
  8. ELIQUIS [Concomitant]
     Active Substance: APIXABAN
  9. ATORBIR [Suspect]
     Active Substance: ATORVASTATIN
     Route: 065

REACTIONS (1)
  - Gingival hypertrophy [Recovered/Resolved]

NARRATIVE: CASE EVENT DATE: 20181001
